FAERS Safety Report 8435889 (Version 9)
Quarter: 2014Q1

REPORT INFORMATION
  Report Type: Report from Study
  Country: US (occurrence: US)
  Receive Date: 20120301
  Receipt Date: 20140326
  Transmission Date: 20141002
  Serious: Yes (Hospitalization)
  Sender: FDA-Public Use
  Company Number: US-JNJFOC-20120213104

PATIENT
  Age: 17 Year
  Sex: Male
  Weight: 53.5 kg

DRUGS (3)
  1. INFLIXIMAB, RECOMBINANT [Suspect]
     Indication: CROHN^S DISEASE
     Route: 042
     Dates: start: 20071101, end: 20080730
  2. CIMZIA [Concomitant]
     Route: 065
  3. PREDNISONE [Concomitant]
     Route: 065

REACTIONS (2)
  - Vesical fistula [Recovered/Resolved]
  - Abdominal abscess [Recovered/Resolved]
